FAERS Safety Report 9162487 (Version 1)
Quarter: 2013Q1

REPORT INFORMATION
  Report Type: Spontaneous
  Country: CH (occurrence: CH)
  Receive Date: 20130314
  Receipt Date: 20130314
  Transmission Date: 20140127
  Serious: Yes (Other)
  Sender: FDA-Public Use
  Company Number: CH-ELI_LILLY_AND_COMPANY-CH201303002635

PATIENT
  Age: 24 Year
  Sex: Female

DRUGS (3)
  1. STRATTERA [Suspect]
     Indication: DISTURBANCE IN ATTENTION
     Dosage: 40 MG, QD
     Route: 048
     Dates: start: 201210
  2. RITALINE [Concomitant]
     Indication: DISTURBANCE IN ATTENTION
     Dosage: 10 MG, QID
     Route: 048
     Dates: start: 1997
  3. FEMINAC 35 [Concomitant]
     Indication: CONTRACEPTION
     Dosage: 1 DF, QD
     Route: 048
     Dates: start: 20130114, end: 20130207

REACTIONS (2)
  - Exposure during pregnancy [Unknown]
  - Off label use [Unknown]
